FAERS Safety Report 7568617-3 (Version None)
Quarter: 2011Q2

REPORT INFORMATION
  Report Type: 
  Country: None (occurrence: None)
  Receive Date: 20110623
  Receipt Date: 20110613
  Transmission Date: 20111010
  Serious: Yes (Other)
  Sender: FDA-Public Use
  Company Number: GXKR2009IE13436

PATIENT
  Age: 63 Year
  Sex: Female

DRUGS (4)
  1. ROMAX [Suspect]
     Indication: OSTEOPOROSIS POSTMENOPAUSAL
     Dosage: 1 DF, QW
     Route: 048
  2. CYMBALTA [Concomitant]
     Indication: DEPRESSION
     Dosage: 30 MG, QD
  3. NEXIUM [Concomitant]
     Indication: ABDOMINAL DISCOMFORT
     Dosage: 40 MG, QD
  4. XANAX [Concomitant]
     Indication: ANXIETY
     Dosage: 1 DF, BID

REACTIONS (6)
  - DYSPEPSIA [None]
  - SYNCOPE [None]
  - DRUG ADMINISTRATION ERROR [None]
  - FLATULENCE [None]
  - ABDOMINAL PAIN UPPER [None]
  - LOSS OF CONSCIOUSNESS [None]
